FAERS Safety Report 18268935 (Version 2)
Quarter: 2020Q4

REPORT INFORMATION
  Report Type: Spontaneous
  Country: CN (occurrence: CN)
  Receive Date: 20200915
  Receipt Date: 20201013
  Transmission Date: 20210113
  Serious: Yes (Other)
  Sender: FDA-Public Use
  Company Number: CN-GILEAD-2020-0494733

PATIENT
  Age: 40 Year
  Sex: Male

DRUGS (1)
  1. ADEFOVIR DIPIVOXIL. [Suspect]
     Active Substance: ADEFOVIR DIPIVOXIL
     Indication: CHRONIC HEPATITIS B
     Dosage: 10 MG, QD
     Route: 048

REACTIONS (12)
  - Glomerular filtration rate decreased [Unknown]
  - Osteopenia [Unknown]
  - Urine uric acid decreased [Unknown]
  - Renal impairment [Unknown]
  - Hypophosphataemia [Recovered/Resolved]
  - Urine phosphorus decreased [Unknown]
  - Haematuria [Unknown]
  - Blood alkaline phosphatase increased [Unknown]
  - Hypouricaemia [Unknown]
  - Nephropathy toxic [Recovering/Resolving]
  - Nephrolithiasis [Unknown]
  - Blood creatinine increased [Recovering/Resolving]
